FAERS Safety Report 11836808 (Version 1)
Quarter: 2015Q4

REPORT INFORMATION
  Report Type: Report from Study
  Country: US (occurrence: US)
  Receive Date: 20151215
  Receipt Date: 20151215
  Transmission Date: 20160305
  Serious: No
  Sender: FDA-Public Use
  Company Number: PHEH2015US026102

PATIENT
  Age: 25 Year
  Sex: Male
  Weight: 72.57 kg

DRUGS (1)
  1. TOBI PODHALER [Suspect]
     Active Substance: TOBRAMYCIN
     Indication: CYSTIC FIBROSIS
     Dosage: 4 DF (28 MG), TWICE A DAY VIA PODHALER EVERY OTHER MONTH 28 DAYS ON 28 DAYS OFF
     Route: 055

REACTIONS (2)
  - Depressed mood [Recovered/Resolved]
  - Depressed mood [Recovered/Resolved]

NARRATIVE: CASE EVENT DATE: 20151207
